FAERS Safety Report 11634198 (Version 3)
Quarter: 2016Q1

REPORT INFORMATION
  Report Type: Report from Study
  Country: KE (occurrence: KE)
  Receive Date: 20151015
  Receipt Date: 20160302
  Transmission Date: 20160525
  Serious: Yes (Disabling, Other)
  Sender: FDA-Public Use
  Company Number: PHHY2015KE123906

PATIENT
  Age: 66 Year
  Sex: Male

DRUGS (2)
  1. GLIVEC [Suspect]
     Active Substance: IMATINIB MESYLATE
     Indication: GASTROINTESTINAL STROMAL TUMOUR
     Dosage: 800 MG, QD
     Route: 048
     Dates: start: 20060722
  2. GLIVEC [Suspect]
     Active Substance: IMATINIB MESYLATE
     Dosage: 600 MG, QD
     Route: 048
     Dates: start: 20140212

REACTIONS (12)
  - Rectal haemorrhage [Not Recovered/Not Resolved]
  - Radiation proctitis [Unknown]
  - Anal stenosis [Unknown]
  - Coronary artery insufficiency [Unknown]
  - Anal sphincter hypertonia [Unknown]
  - Intestinal obstruction [Unknown]
  - Gastrointestinal stromal tumour [Not Recovered/Not Resolved]
  - Treatment failure [Not Recovered/Not Resolved]
  - Malignant neoplasm progression [Not Recovered/Not Resolved]
  - No therapeutic response [Unknown]
  - Circulatory collapse [Unknown]
  - Intestinal mass [Recovering/Resolving]

NARRATIVE: CASE EVENT DATE: 20140212
